FAERS Safety Report 26111432 (Version 1)
Quarter: 2025Q4

REPORT INFORMATION
  Report Type: Other
  Country: GB (occurrence: GB)
  Receive Date: 20251202
  Receipt Date: 20251202
  Transmission Date: 20260117
  Serious: Yes (Other)
  Sender: ASPEN
  Company Number: GB-PFIZER INC-PV202500136736

PATIENT

DRUGS (2)
  1. DEXAMETHASONE SODIUM PHOSPHATE [Suspect]
     Active Substance: DEXAMETHASONE SODIUM PHOSPHATE
     Indication: Plasma cell myeloma
     Dosage: UNK, FOR 28 CYCLES
     Route: 065
  2. POMALIDOMIDE [Suspect]
     Active Substance: POMALIDOMIDE
     Indication: Plasma cell myeloma
     Dosage: UNK, FOR 28 CYCLES
     Route: 065

REACTIONS (4)
  - Off label use [Unknown]
  - Plasma cell myeloma [Unknown]
  - Neoplasm progression [Unknown]
  - Neuropathy peripheral [Unknown]
